FAERS Safety Report 20577188 (Version 1)
Quarter: 2022Q1

REPORT INFORMATION
  Report Type: Spontaneous
  Country: US (occurrence: None)
  Receive Date: 20220309
  Receipt Date: 20220309
  Transmission Date: 20220423
  Serious: No
  Sender: FDA-Public Use
  Company Number: None

PATIENT
  Sex: Female
  Weight: 68.04 kg

DRUGS (18)
  1. CAPECITABINE [Suspect]
     Active Substance: CAPECITABINE
     Indication: Anal cancer
     Dosage: FREQUENCY : TWICE A DAY;?
     Route: 048
  2. AMITRIPTYLINE [Concomitant]
     Active Substance: AMITRIPTYLINE
  3. ATENOLOL [Concomitant]
     Active Substance: ATENOLOL
  4. COENZYME Q10 [Concomitant]
     Active Substance: DIETARY SUPPLEMENT\UBIDECARENONE
  5. COUMADIN [Concomitant]
     Active Substance: WARFARIN SODIUM
  6. FISH OIL [Concomitant]
     Active Substance: FISH OIL
  7. LEXAPRO [Concomitant]
     Active Substance: ESCITALOPRAM OXALATE
  8. LOVENOX [Concomitant]
     Active Substance: ENOXAPARIN SODIUM
  9. MONTELUKAST [Concomitant]
     Active Substance: MONTELUKAST SODIUM
  10. NITROGLYCERIN [Concomitant]
     Active Substance: NITROGLYCERIN
  11. PENTAZOCINA-NALOXONE [Concomitant]
  12. PHILIPS COLON HEALTH [Concomitant]
  13. SYMBICORT [Concomitant]
     Active Substance: BUDESONIDE\FORMOTEROL FUMARATE DIHYDRATE
  14. TIZANIDINE [Concomitant]
     Active Substance: TIZANIDINE
  15. TOPAMAX [Concomitant]
     Active Substance: TOPIRAMATE
  16. VITAMIN D2 [Concomitant]
     Active Substance: ERGOCALCIFEROL
  17. VYEPTI [Concomitant]
     Active Substance: EPTINEZUMAB-JJMR
  18. WARFARIN [Concomitant]
     Active Substance: WARFARIN

REACTIONS (2)
  - Hypovolaemic shock [None]
  - Therapy interrupted [None]
